FAERS Safety Report 5233348-1 (Version None)
Quarter: 2007Q1

REPORT INFORMATION
  Report Type: 
  Country: None (occurrence: None)
  Receive Date: 20070207
  Receipt Date: 20070130
  Transmission Date: 20070707
  Serious: Yes (Life-Threatening)
  Sender: FDA-Public Use
  Company Number: TR-BRACCO-BRO-011129

PATIENT
  Age: 44 Year
  Sex: Female
  Weight: 56 kg

DRUGS (3)
  1. MULTIHANCE [Suspect]
     Indication: NUCLEAR MAGNETIC RESONANCE IMAGING ABDOMINAL
     Route: 042
     Dates: start: 20070117, end: 20070117
  2. ROCEPHIN [Concomitant]
     Route: 051
     Dates: start: 20070115
  3. ULCURAN [Concomitant]
     Route: 048
     Dates: start: 20070115

REACTIONS (3)
  - ABDOMINAL PAIN UPPER [None]
  - ANGIOEDEMA [None]
  - SPEECH DISORDER [None]
